FAERS Safety Report 19230048 (Version 1)
Quarter: 2021Q2

REPORT INFORMATION
  Report Type: Spontaneous
  Country: US (occurrence: US)
  Receive Date: 20210507
  Receipt Date: 20210507
  Transmission Date: 20210717
  Serious: No
  Sender: FDA-Public Use
  Company Number: US-SA-2021SA149420

PATIENT

DRUGS (1)
  1. DUPIXENT [Suspect]
     Active Substance: DUPILUMAB
     Dosage: UNK
     Dates: start: 202101

REACTIONS (4)
  - Rash [Unknown]
  - Contusion [Unknown]
  - Acne [Unknown]
  - Skin lesion [Unknown]

NARRATIVE: CASE EVENT DATE: 2021
